FAERS Safety Report 7037356-X (Version None)
Quarter: 2010Q4

REPORT INFORMATION
  Report Type: 
  Country: None (occurrence: None)
  Receive Date: 20101011
  Receipt Date: 20100929
  Transmission Date: 20110411
  Serious: Yes (Hospitalization)
  Sender: FDA-Public Use
  Company Number: US-ELI_LILLY_AND_COMPANY-US201010001157

PATIENT
  Sex: Female
  Weight: 52.608 kg

DRUGS (7)
  1. PRASUGREL HYDROCHLORIDE [Suspect]
     Indication: ACUTE CORONARY SYNDROME
     Dosage: 60 MG, ONCE
     Dates: start: 20100419, end: 20100419
  2. PRASUGREL HYDROCHLORIDE [Suspect]
     Dosage: 5 MG, DAILY (1/D)
     Dates: start: 20100420
  3. ASPIRIN [Concomitant]
     Indication: ANTIPLATELET THERAPY
     Dosage: 325 MG, DAILY (1/D)
     Dates: start: 20100419
  4. PRILOSEC [Concomitant]
     Indication: GASTROOESOPHAGEAL REFLUX DISEASE
     Dosage: 20 MG, DAILY (1/D)
     Route: 048
  5. LOVASTATIN [Concomitant]
     Indication: HYPERLIPIDAEMIA
     Dosage: 80 MG, DAILY (1/D)
     Route: 048
  6. ENALAPRIL MALEATE [Concomitant]
     Indication: HYPERTENSION
     Dosage: 20 MG, DAILY (1/D)
     Route: 048
  7. COREG [Concomitant]
     Indication: CARDIAC FAILURE
     Dosage: 3.12 MG, DAILY (1/D)
     Route: 048

REACTIONS (1)
  - DRUG HYPERSENSITIVITY [None]
